FAERS Safety Report 6588559-X (Version None)
Quarter: 2010Q1

REPORT INFORMATION
  Report Type: 
  Country: None (occurrence: None)
  Receive Date: 20100218
  Receipt Date: 20091116
  Transmission Date: 20100710
  Serious: No
  Sender: FDA-Public Use
  Company Number: US-ALLERGAN-0915872US

PATIENT
  Age: 32 Year
  Sex: Female

DRUGS (4)
  1. BOTOX COSMETIC [Suspect]
     Indication: SKIN WRINKLING
     Dosage: 45 UNITS, SINGLE
     Route: 030
     Dates: start: 20091112, end: 20091112
  2. BOTOX COSMETIC [Suspect]
     Dosage: UNK UNITS, SINGLE
     Route: 030
  3. BOTOX COSMETIC [Suspect]
     Dosage: UNK UNITS, SINGLE
     Route: 030
  4. BOTOX COSMETIC [Suspect]
     Dosage: UNK UNITS, SINGLE
     Route: 030

REACTIONS (3)
  - DRUG INEFFECTIVE [None]
  - INJECTION SITE HAEMATOMA [None]
  - INJECTION SITE HAEMORRHAGE [None]
